FAERS Safety Report 25136715 (Version 1)
Quarter: 2025Q1

REPORT INFORMATION
  Report Type: Report from Study
  Country: US (occurrence: None)
  Receive Date: 20250328
  Receipt Date: 20250328
  Transmission Date: 20250408
  Serious: No
  Sender: INCYTE
  Company Number: US-INCYTE CORPORATION-2025IN003024

PATIENT

DRUGS (2)
  1. JAKAFI [Suspect]
     Active Substance: RUXOLITINIB
     Dosage: UNK, BID
  2. JAKAFI [Suspect]
     Active Substance: RUXOLITINIB
     Dosage: UNK, QD

REACTIONS (1)
  - Intentional product use issue [Unknown]
